FAERS Safety Report 22870436 (Version 5)
Quarter: 2024Q2

REPORT INFORMATION
  Report Type: Spontaneous
  Country: US (occurrence: US)
  Receive Date: 20230827
  Receipt Date: 20240605
  Transmission Date: 20240715
  Serious: Yes (Hospitalization, Disabling)
  Sender: FDA-Public Use
  Company Number: US-SA-SAC20230824001069

PATIENT
  Age: 73 Year
  Sex: Female
  Weight: 81.1 kg

DRUGS (21)
  1. DUPIXENT [Suspect]
     Active Substance: DUPILUMAB
     Indication: Neurodermatitis
     Dosage: 300 MG, QOW
     Route: 058
     Dates: start: 20230327, end: 2023
  2. DUPIXENT [Suspect]
     Active Substance: DUPILUMAB
     Indication: Asthma
     Dosage: 300 MG, QOW
     Route: 058
     Dates: end: 2024
  3. DUPIXENT [Suspect]
     Active Substance: DUPILUMAB
     Indication: Dermatitis
  4. DUPIXENT [Suspect]
     Active Substance: DUPILUMAB
     Indication: Nasal polyps
  5. VITAMIN D3 [Concomitant]
     Active Substance: CHOLECALCIFEROL
     Dosage: UNK
  6. PAROXETINE HYDROCHLORIDE [Concomitant]
     Active Substance: PAROXETINE HYDROCHLORIDE\PAROXETINE HYDROCHLORIDE ANHYDROUS
     Dosage: 1 DF, QD
     Route: 048
  7. PANTOPRAZOLE SODIUM [Concomitant]
     Active Substance: PANTOPRAZOLE SODIUM
     Dosage: 1 DF, QD
     Route: 048
  8. METOPROLOL TARTRATE [Concomitant]
     Active Substance: METOPROLOL TARTRATE
     Indication: Chronic left ventricular failure
     Dosage: 1 DF, BID
     Route: 048
  9. LASIX [Concomitant]
     Active Substance: FUROSEMIDE
     Indication: Chronic left ventricular failure
     Dosage: 1 DF, QD
     Route: 048
  10. LOSARTAN POTASSIUM [Concomitant]
     Active Substance: LOSARTAN POTASSIUM
     Indication: Chronic left ventricular failure
     Dosage: 1 DF, QD
     Route: 048
  11. SIMVASTATIN [Concomitant]
     Active Substance: SIMVASTATIN
     Dosage: 1 DF, QD
     Route: 048
  12. CLONAZEPAM [Concomitant]
     Active Substance: CLONAZEPAM
     Dosage: 1 DF, QD
     Route: 048
  13. BENZONATATE [Concomitant]
     Active Substance: BENZONATATE
     Dosage: 1 DF, PRN
     Route: 048
  14. POTASSIUM CHLORIDE [Concomitant]
     Active Substance: POTASSIUM CHLORIDE
     Dosage: 1 DF, QD
     Route: 048
  15. ESTRADIOL [Concomitant]
     Active Substance: ESTRADIOL
     Dosage: 1 DF, BIW
  16. MUCIPRIN [Concomitant]
     Dosage: UNK UNK, BID
     Route: 061
  17. MELATONIN [Concomitant]
     Active Substance: MELATONIN
     Dosage: UNK, PRN
  18. PROVENTIL HFA [Concomitant]
     Active Substance: ALBUTEROL SULFATE
     Dosage: 2 DF, Q4D
     Route: 055
  19. BITARTRATE DE DETAJMIUM [Concomitant]
     Indication: Pain
     Dosage: 1-2 TAB
     Route: 048
  20. ACETAMINOPHEN\HYDROCODONE [Concomitant]
     Active Substance: ACETAMINOPHEN\HYDROCODONE
     Dosage: UNK
  21. PRILOSEC [Concomitant]
     Active Substance: OMEPRAZOLE MAGNESIUM
     Dosage: UNK UNK, QD
     Route: 048

REACTIONS (27)
  - Respiratory syncytial virus bronchitis [Recovering/Resolving]
  - Bronchiolitis [Recovering/Resolving]
  - Dyspnoea [Recovering/Resolving]
  - Nasopharyngitis [Recovering/Resolving]
  - Pyrexia [Recovering/Resolving]
  - Upper respiratory tract infection [Recovering/Resolving]
  - Wheezing [Recovering/Resolving]
  - Malaise [Recovering/Resolving]
  - Cough [Recovering/Resolving]
  - Limb injury [Recovered/Resolved]
  - Skin laceration [Recovered/Resolved]
  - Viral infection [Recovering/Resolving]
  - COVID-19 [Not Recovered/Not Resolved]
  - Cough [Not Recovered/Not Resolved]
  - Dyspnoea [Recovering/Resolving]
  - Decreased appetite [Not Recovered/Not Resolved]
  - Retching [Unknown]
  - Dry mouth [Unknown]
  - Chest pain [Recovering/Resolving]
  - Itching scar [Not Recovered/Not Resolved]
  - Scratch [Not Recovered/Not Resolved]
  - Chronic obstructive pulmonary disease [Unknown]
  - Fibrin D dimer increased [Unknown]
  - Fatigue [Unknown]
  - Brain natriuretic peptide increased [Unknown]
  - Influenza [Unknown]
  - Product use in unapproved indication [Unknown]

NARRATIVE: CASE EVENT DATE: 20230101
